FAERS Safety Report 9190382 (Version 2)
Quarter: 2013Q2

REPORT INFORMATION
  Report Type: Spontaneous
  Country: BR (occurrence: BR)
  Receive Date: 20130326
  Receipt Date: 20130422
  Transmission Date: 20140414
  Serious: Yes (Other)
  Sender: FDA-Public Use
  Company Number: BR-PFIZER INC-2013094595

PATIENT
  Sex: Female

DRUGS (6)
  1. FELDENE SL [Suspect]
     Indication: TENDONITIS
     Dosage: 20 MG, 1X/DAY
     Dates: start: 20130312, end: 20130317
  2. ATENOLOL [Concomitant]
     Indication: HYPERTENSION
  3. LOSARTAN [Concomitant]
     Indication: HYPERTENSION
  4. OLCADIL [Concomitant]
     Indication: NERVOUS SYSTEM DISORDER
  5. OLCADIL [Concomitant]
     Indication: SLEEP DISORDER
  6. CRESTOR [Concomitant]
     Indication: BLOOD CHOLESTEROL INCREASED

REACTIONS (6)
  - Urinary retention [Not Recovered/Not Resolved]
  - Irritability [Recovered/Resolved]
  - Hypertension [Recovered/Resolved]
  - Nervousness [Recovered/Resolved]
  - Dizziness [Recovered/Resolved]
  - Insomnia [Not Recovered/Not Resolved]
